FAERS Safety Report 10357205 (Version 1)
Quarter: 2014Q3

REPORT INFORMATION
  Report Type: Spontaneous
  Country: US (occurrence: US)
  Receive Date: 20140801
  Receipt Date: 20140801
  Transmission Date: 20150326
  Serious: Yes (Hospitalization)
  Sender: FDA-Public Use
  Company Number: US-ASTELLAS-2014US009190

PATIENT
  Age: 62 Year
  Sex: Female

DRUGS (1)
  1. TARCEVA [Suspect]
     Active Substance: ERLOTINIB HYDROCHLORIDE
     Indication: SMALL CELL LUNG CANCER
     Route: 048
     Dates: start: 20140110

REACTIONS (5)
  - Catatonia [Recovering/Resolving]
  - Amnesia [Unknown]
  - Headache [Unknown]
  - Asthenia [Unknown]
  - Major depression [Recovering/Resolving]

NARRATIVE: CASE EVENT DATE: 20140603
